FAERS Safety Report 8468850-2 (Version None)
Quarter: 2012Q2

REPORT INFORMATION
  Report Type: 
  Country: None (occurrence: None)
  Receive Date: 20120626
  Receipt Date: 20120104
  Transmission Date: 20120825
  Serious: Yes (Other)
  Sender: FDA-Public Use
  Company Number: CN-ROCHE-1028371

PATIENT
  Age: 52 Year
  Sex: Female

DRUGS (2)
  1. XELODA [Suspect]
     Indication: PANCREATIC CARCINOMA
     Route: 048
  2. NIMOTUZUMAB [Concomitant]
     Indication: PANCREATIC CARCINOMA

REACTIONS (2)
  - INTESTINAL OBSTRUCTION [None]
  - HICCUPS [None]
